FAERS Safety Report 12313763 (Version 1)
Quarter: 2016Q2

REPORT INFORMATION
  Report Type: Spontaneous
  Country: US (occurrence: None)
  Receive Date: 20160427
  Receipt Date: 20160427
  Transmission Date: 20160815
  Serious: Yes (Hospitalization)
  Sender: FDA-Public Use
  Company Number: None

PATIENT
  Age: 61 Year
  Sex: Female
  Weight: 29.89 kg

DRUGS (5)
  1. GENERIC TYLENOL [Concomitant]
  2. METFORMIN HCL [Suspect]
     Active Substance: METFORMIN HYDROCHLORIDE
     Indication: BLOOD GLUCOSE DECREASED
     Dates: start: 1995, end: 1999
  3. METFORMIN HCL [Suspect]
     Active Substance: METFORMIN HYDROCHLORIDE
     Indication: TYPE 2 DIABETES MELLITUS
     Dates: start: 1995, end: 1999
  4. GLYBURIDE 5 MG [Suspect]
     Active Substance: GLYBURIDE
     Indication: BLOOD GLUCOSE DECREASED
     Dates: start: 1995, end: 1999
  5. GLYBURIDE 5 MG [Suspect]
     Active Substance: GLYBURIDE
     Indication: TYPE 2 DIABETES MELLITUS
     Dates: start: 1995, end: 1999

REACTIONS (13)
  - Tremor [None]
  - Choledochectomy [None]
  - Hyperglycaemia [None]
  - Presyncope [None]
  - Palpitations [None]
  - Anxiety [None]
  - Dizziness [None]
  - Retching [None]
  - Renal cyst [None]
  - Hepatic steatosis [None]
  - Blood glucose decreased [None]
  - Diabetic nephropathy [None]
  - Abdominal discomfort [None]

NARRATIVE: CASE EVENT DATE: 201511
